FAERS Safety Report 6470376-2 (Version None)
Quarter: 2009Q4

REPORT INFORMATION
  Report Type: 
  Country: None (occurrence: None)
  Receive Date: 20091203
  Receipt Date: 20091123
  Transmission Date: 20100525
  Serious: Yes (Hospitalization)
  Sender: FDA-Public Use
  Company Number: FR-PFIZER INC-2009301202

PATIENT
  Age: 79 Year
  Sex: Female

DRUGS (12)
  1. TAHOR [Suspect]
     Indication: HYPERCHOLESTEROLAEMIA
     Dosage: 40 MG, 1X/DAY
     Route: 048
     Dates: start: 20080801, end: 20090524
  2. BACLOFEN [Suspect]
     Indication: HEMIPLEGIA
     Dosage: 5 MG, 2X/DAY
     Route: 048
     Dates: start: 20080901, end: 20090524
  3. DI-ANTALVIC [Suspect]
     Indication: PAIN
     Dosage: 2 DF, 2X/DAY
     Route: 048
     Dates: start: 20080901, end: 20090524
  4. GLIMEPIRIDE [Suspect]
     Indication: TYPE 2 DIABETES MELLITUS
     Dosage: 2 MG, 1X/DAY
     Route: 048
     Dates: start: 20080701, end: 20090524
  5. GLUCOR [Suspect]
     Indication: TYPE 2 DIABETES MELLITUS
     Dosage: 100 MG, 3X/DAY
     Route: 048
     Dates: start: 20080701, end: 20090524
  6. ESIDRIX [Suspect]
     Indication: HYPERTENSION
     Dosage: 25 MG, 1X/DAY
     Route: 048
     Dates: start: 20080801, end: 20090526
  7. ATENOLOL [Concomitant]
     Indication: HYPERTENSION
     Dosage: 100 MG, UNK
     Route: 048
  8. AMLODIPINE [Concomitant]
     Indication: HYPERTENSION
     Dosage: 10 MG, UNK
     Route: 048
  9. KARDEGIC [Concomitant]
     Indication: MYOCARDIAL ISCHAEMIA
     Dosage: 160 MG, 1X/DAY
     Route: 048
     Dates: start: 20080701
  10. CACIT D3 [Concomitant]
     Indication: CALCIUM DEFICIENCY
     Dosage: 1 DF, 1X/DAY
     Route: 048
     Dates: start: 20080701
  11. NITROGLYCERIN [Concomitant]
     Indication: CARDIOVASCULAR EVENT PROPHYLAXIS
     Dosage: 1 DF, 1X/DAY
     Route: 062
     Dates: start: 20080701
  12. OMEPRAZOLE [Concomitant]
     Indication: GASTROOESOPHAGEAL REFLUX DISEASE
     Dosage: 10 MG, 1X/DAY
     Route: 048
     Dates: start: 20080801

REACTIONS (3)
  - CHOLESTATIC LIVER INJURY [None]
  - HEPATIC ENCEPHALOPATHY [None]
  - HYPERAMMONAEMIA [None]
